FAERS Safety Report 9816462 (Version 2)
Quarter: 2014Q2

REPORT INFORMATION
  Report Type: Spontaneous
  Country: JP (occurrence: JP)
  Receive Date: 20140114
  Receipt Date: 20140527
  Transmission Date: 20141212
  Serious: Yes (Hospitalization, Other)
  Sender: FDA-Public Use
  Company Number: JP-TAKEDA-2014TJP000515

PATIENT
  Age: 63 Year
  Sex: Female
  Weight: 60 kg

DRUGS (8)
  1. NESINA TABLETS 25MG [Suspect]
     Indication: BLOOD GLUCOSE ABNORMAL
     Dosage: 25 MG, QD
     Route: 048
     Dates: end: 20140108
  2. NESINA TABLETS 25MG [Suspect]
     Dosage: 25 MG, QD
     Route: 048
     Dates: start: 20140118, end: 20140124
  3. METGLUCO [Concomitant]
     Dosage: 250 MG, TID
     Route: 048
  4. PIOGLITAZONE                       /01460202/ [Concomitant]
     Dosage: 7.5 MG, QD
     Route: 048
  5. LIDUC M [Concomitant]
     Dosage: 10 MG, QD
     Route: 048
  6. BROTIZOLAM OD TAIYO [Concomitant]
     Indication: INSOMNIA
     Dosage: 0.25 MG, PRN
     Route: 048
  7. PANTOSIN [Concomitant]
     Dosage: 0.5 G, TID
     Route: 048
  8. MAGNESIUM OXIDE [Concomitant]
     Dosage: 1 G, TID
     Route: 048

REACTIONS (1)
  - Pancreatitis [Recovering/Resolving]
